FAERS Safety Report 6312999-7 (Version None)
Quarter: 2009Q3

REPORT INFORMATION
  Report Type: 
  Country: None (occurrence: None)
  Receive Date: 20090814
  Receipt Date: 20090814
  Transmission Date: 20100115
  Serious: No
  Sender: FDA-Public Use
  Company Number: None

PATIENT
  Age: 29 Year
  Sex: Female
  Weight: 50.8029 kg

DRUGS (1)
  1. AVELOX [Suspect]
     Indication: SINUSITIS
     Dosage: 1 PILL 1/DAY PO
     Route: 048
     Dates: start: 20090604, end: 20090605

REACTIONS (5)
  - ORTHOSIS USER [None]
  - PAIN [None]
  - RASH [None]
  - TENDONITIS [None]
  - WHEELCHAIR USER [None]
